FAERS Safety Report 21844925 (Version 1)
Quarter: 2023Q1

REPORT INFORMATION
  Report Type: Spontaneous
  Country: US (occurrence: US)
  Receive Date: 20230110
  Receipt Date: 20230110
  Transmission Date: 20230418
  Serious: No
  Sender: FDA-Public Use
  Company Number: US-ELI_LILLY_AND_COMPANY-US202212007333

PATIENT

DRUGS (4)
  1. CYMBALTA [Suspect]
     Active Substance: DULOXETINE HYDROCHLORIDE
     Indication: Product used for unknown indication
     Dosage: UNK, UNKNOWN
     Route: 065
  2. PREMARIN [Concomitant]
     Active Substance: ESTROGENS, CONJUGATED
     Indication: Product used for unknown indication
     Dosage: 0.3 MG, DAILY
     Route: 048
  3. NEURONTIN [GABAPENTIN] [Concomitant]
     Indication: Product used for unknown indication
     Dosage: 2.4 G, OTHER, 600 AT MORNING AND NOON, 1200 MG AT BEDTIME
  4. NITROSTAT [Concomitant]
     Active Substance: NITROGLYCERIN
     Indication: Chest pain
     Dosage: 0.4 MG, PRN. EVERY FIVE MINUTES
     Route: 060

REACTIONS (2)
  - Oesophageal spasm [Unknown]
  - Dyspepsia [Unknown]
